FAERS Safety Report 6782055-2 (Version None)
Quarter: 2010Q2

REPORT INFORMATION
  Report Type: 
  Country: None (occurrence: None)
  Receive Date: 20100621
  Receipt Date: 20100611
  Transmission Date: 20101027
  Serious: Yes (Life-Threatening, Hospitalization, Other)
  Sender: FDA-Public Use
  Company Number: B0653806A

PATIENT
  Sex: Male

DRUGS (2)
  1. SERETIDE [Suspect]
     Indication: ASTHMA
     Dosage: 500MG TWICE PER DAY
     Route: 055
     Dates: start: 20051201
  2. XYZAL [Concomitant]
     Indication: RHINITIS
     Dosage: 5MG PER DAY
     Route: 048

REACTIONS (6)
  - ASTHMA [None]
  - BENIGN INTRACRANIAL HYPERTENSION [None]
  - CSF PRESSURE INCREASED [None]
  - HEADACHE [None]
  - PAPILLOEDEMA [None]
  - VOMITING [None]
